FAERS Safety Report 18496329 (Version 6)
Quarter: 2022Q3

REPORT INFORMATION
  Report Type: Other
  Country: CA (occurrence: None)
  Receive Date: 20201112
  Receipt Date: 20220912
  Transmission Date: 20221027
  Serious: Yes (Other)
  Sender: FDA-Public Use
  Company Number: CA-ROCHE-2436191

PATIENT
  Age: 35 Year
  Sex: Female

DRUGS (7)
  1. OCREVUS [Suspect]
     Active Substance: OCRELIZUMAB
     Indication: Relapsing-remitting multiple sclerosis
     Dosage: PERFUSION NO: 1?DAY 0, 14 THEN 600 MG EVERY 6 MONTH
     Route: 042
     Dates: start: 20191003
  2. OCREVUS [Suspect]
     Active Substance: OCRELIZUMAB
     Dosage: PERFUSION NO: 3
     Route: 042
     Dates: start: 20200331
  3. OCREVUS [Suspect]
     Active Substance: OCRELIZUMAB
     Dosage: PERFUSION NO: 4
     Route: 042
     Dates: start: 20201007
  4. ACETAMINOPHEN [Concomitant]
     Active Substance: ACETAMINOPHEN
     Indication: Premedication
     Route: 048
     Dates: start: 20191003
  5. BENADRYL [Concomitant]
     Active Substance: DIPHENHYDRAMINE HYDROCHLORIDE
     Indication: Premedication
     Route: 048
     Dates: start: 20191003
  6. METHYLPREDNISOLONE [Concomitant]
     Active Substance: METHYLPREDNISOLONE
     Indication: Premedication
     Route: 042
     Dates: start: 20191003
  7. OZEMPIC [Concomitant]
     Active Substance: SEMAGLUTIDE

REACTIONS (5)
  - COVID-19 pneumonia [Not Recovered/Not Resolved]
  - Infusion related reaction [Recovered/Resolved]
  - Asthma [Unknown]
  - Abdominal pain upper [Unknown]
  - Diarrhoea [Unknown]

NARRATIVE: CASE EVENT DATE: 20191003
